FAERS Safety Report 9937255 (Version 2)
Quarter: 2014Q1

REPORT INFORMATION
  Report Type: Spontaneous
  Country: US (occurrence: US)
  Receive Date: 20140302
  Receipt Date: 20140302
  Transmission Date: 20141002
  Serious: Yes (Other)
  Sender: FDA-Public Use
  Company Number: US-GE HEALTHCARE MEDICAL DIAGNOSTICS-OSCN-PR-0905S-0227

PATIENT
  Age: 50 Year
  Sex: Female

DRUGS (10)
  1. OMNISCAN [Suspect]
     Indication: PRODUCT USED FOR UNKNOWN INDICATION
     Route: 042
     Dates: start: 20050503, end: 20050503
  2. OMNISCAN [Suspect]
     Route: 042
     Dates: start: 20051011, end: 20051011
  3. OMNISCAN [Suspect]
     Route: 042
     Dates: start: 20051201, end: 20051201
  4. OMNISCAN [Suspect]
     Route: 042
     Dates: start: 20060316, end: 20060316
  5. OMNISCAN [Suspect]
     Route: 042
     Dates: start: 20060604, end: 20060604
  6. OMNISCAN [Suspect]
     Route: 042
     Dates: start: 20061123, end: 20061123
  7. METHADONE [Concomitant]
  8. MS CONTIN [Concomitant]
  9. OXYCONTIN [Concomitant]
  10. PERCOCET [Concomitant]

REACTIONS (1)
  - Nephrogenic systemic fibrosis [Not Recovered/Not Resolved]
